FAERS Safety Report 24851214 (Version 2)
Quarter: 2025Q1

REPORT INFORMATION
  Report Type: Spontaneous
  Country: US (occurrence: US)
  Receive Date: 20250116
  Receipt Date: 20250121
  Transmission Date: 20250409
  Serious: Yes (Other)
  Sender: BAYER HEALTHCARE PHARMACEUTICALS INC.
  Company Number: US-BAYER-2025A006600

PATIENT
  Age: 58 Year
  Sex: Female

DRUGS (2)
  1. MIRENA [Suspect]
     Active Substance: LEVONORGESTREL
     Indication: Intrauterine contraception
     Dosage: 20?G/DAY
     Route: 015
     Dates: start: 20230109
  2. MIRENA [Suspect]
     Active Substance: LEVONORGESTREL
     Indication: Postmenopausal haemorrhage

REACTIONS (1)
  - Postmenopausal haemorrhage [None]
